FAERS Safety Report 23622831 (Version 2)
Quarter: 2024Q2

REPORT INFORMATION
  Report Type: Spontaneous
  Country: US (occurrence: US)
  Receive Date: 20240312
  Receipt Date: 20240426
  Transmission Date: 20240715
  Serious: No
  Sender: FDA-Public Use
  Company Number: US-PFIZER INC-202400061399

PATIENT
  Age: 63 Year
  Sex: Female
  Weight: 61.224 kg

DRUGS (12)
  1. PAXLOVID [Suspect]
     Active Substance: NIRMATRELVIR\RITONAVIR
     Indication: COVID-19 treatment
     Dosage: 10 MG, 2X/DAY
     Dates: start: 20240301, end: 20240306
  2. METFORMIN [Concomitant]
     Active Substance: METFORMIN HYDROCHLORIDE
     Dosage: UNK
  3. SYNTHROID [Concomitant]
     Active Substance: LEVOTHYROXINE SODIUM
     Dosage: UNK
  4. ZETIA [Concomitant]
     Active Substance: EZETIMIBE
     Dosage: UNK
  5. MYRBETRIQ [Concomitant]
     Active Substance: MIRABEGRON
     Dosage: UNK
  6. ASPIRIN [Concomitant]
     Active Substance: ASPIRIN
     Dosage: UNK, LOW DOSE
  7. BENADRYL [Concomitant]
     Active Substance: DIPHENHYDRAMINE HYDROCHLORIDE
     Dosage: UNK
     Dates: start: 20240315
  8. ZINC [Concomitant]
     Active Substance: PYRITHIONE ZINC\ZINC\ZINC CHLORIDE
     Dosage: UNK
     Dates: start: 20240315
  9. ESTRADIOL [Concomitant]
     Active Substance: ESTRADIOL
     Dosage: UNK
  10. TRULICITY [Concomitant]
     Active Substance: DULAGLUTIDE
     Dosage: UNK
  11. ENALAPRIL MALEATE [Concomitant]
     Active Substance: ENALAPRIL MALEATE
     Dosage: UNK
  12. COLESTIPOL [Concomitant]
     Active Substance: COLESTIPOL
     Dosage: UNK

REACTIONS (4)
  - COVID-19 [Recovered/Resolved]
  - Disease recurrence [Recovered/Resolved]
  - Nausea [Recovered/Resolved]
  - Product prescribing error [Unknown]

NARRATIVE: CASE EVENT DATE: 20240301
